FAERS Safety Report 12872268 (Version 1)
Quarter: 2016Q4

REPORT INFORMATION
  Report Type: Spontaneous
  Country: SE (occurrence: SE)
  Receive Date: 20161021
  Receipt Date: 20161021
  Transmission Date: 20170207
  Serious: Yes (Hospitalization)
  Sender: FDA-Public Use
  Company Number: SE-TEVA-701746ROM

PATIENT
  Age: 78 Year
  Sex: Female

DRUGS (2)
  1. ATENOLOL. [Suspect]
     Active Substance: ATENOLOL
  2. DIGOXIN. [Suspect]
     Active Substance: DIGOXIN

REACTIONS (3)
  - Nausea [Not Recovered/Not Resolved]
  - Cachexia [Not Recovered/Not Resolved]
  - Bradycardia [Not Recovered/Not Resolved]
